FAERS Safety Report 7033742-2 (Version None)
Quarter: 2010Q4

REPORT INFORMATION
  Report Type: 
  Country: None (occurrence: None)
  Receive Date: 20101007
  Receipt Date: 20100921
  Transmission Date: 20110411
  Serious: Yes (Other)
  Sender: FDA-Public Use
  Company Number: PHHY2010BR65035

PATIENT
  Age: 68 Year
  Sex: Male

DRUGS (7)
  1. GALVUS [Suspect]
     Dosage: 50 MG
  2. DIOVAN AMLO [Suspect]
     Dosage: 80/5 MG
  3. ACTOS [Concomitant]
     Dosage: 30 MG MID
  4. GLUCOBAY [Concomitant]
     Dosage: 100 MG, BID
  5. NPH INSULIN [Concomitant]
     Dosage: 15 IU NIGHT
  6. OMEPRAZOLE [Concomitant]
     Dosage: 20 MG
  7. SIMVASTATIN [Concomitant]
     Dosage: 20 MG

REACTIONS (1)
  - DIABETES MELLITUS INADEQUATE CONTROL [None]
